FAERS Safety Report 13099042 (Version 3)
Quarter: 2017Q1

REPORT INFORMATION
  Report Type: Spontaneous
  Country: JP (occurrence: JP)
  Receive Date: 20170109
  Receipt Date: 20170313
  Transmission Date: 20170428
  Serious: Yes (Hospitalization, Other)
  Sender: FDA-Public Use
  Company Number: JP-ELI_LILLY_AND_COMPANY-JP201701002550

PATIENT
  Age: 62 Year
  Sex: Male
  Weight: 61 kg

DRUGS (3)
  1. IRINOTECAN [Suspect]
     Active Substance: IRINOTECAN
     Indication: COLON CANCER
     Dosage: 270 MG, OTHER ONCE IN THREE WEEKS
     Route: 042
     Dates: start: 201606
  2. ERBITUX [Suspect]
     Active Substance: CETUXIMAB
     Indication: COLON CANCER
     Dosage: 450 MG, WEEKLY (1/W)
     Route: 042
     Dates: start: 201606
  3. TS-1 [Concomitant]
     Active Substance: GIMERACIL\OTERACIL\TEGAFUR
     Indication: COLON CANCER
     Dosage: 120 MG, QD
     Route: 048
     Dates: start: 201606

REACTIONS (6)
  - Hyperglycaemia [Recovering/Resolving]
  - Decreased appetite [Recovering/Resolving]
  - Vomiting [Unknown]
  - Off label use [Unknown]
  - Malaise [Recovering/Resolving]
  - Dehydration [Recovering/Resolving]

NARRATIVE: CASE EVENT DATE: 20161222
